FAERS Safety Report 6370776-5 (Version None)
Quarter: 2009Q3

REPORT INFORMATION
  Report Type: 
  Country: None (occurrence: None)
  Receive Date: 20090923
  Receipt Date: 20080107
  Transmission Date: 20100115
  Serious: Yes (Other)
  Sender: FDA-Public Use
  Company Number: US-ASTRAZENECA-2006UW24523

PATIENT
  Age: 9238 Day
  Sex: Female
  Weight: 102.1 kg

DRUGS (24)
  1. SEROQUEL [Suspect]
     Indication: BIPOLAR DISORDER
     Route: 048
     Dates: start: 20020101
  2. PREDNISONE [Concomitant]
  3. ATIVAN [Concomitant]
  4. ADVAIR HFA [Concomitant]
     Dosage: 500/50 ONE PUFF TWO TIMES PER DAY
  5. SINGULAIR [Concomitant]
  6. K-LAN SR [Concomitant]
  7. PREVACID [Concomitant]
  8. FLONASE [Concomitant]
     Dosage: ONE PUFF TWO TIMES DAILY
  9. XOPENEX [Concomitant]
     Dosage: FOUR TIMES DAILY
  10. XANAX [Concomitant]
  11. KLONOPIN [Concomitant]
  12. AMBIEN [Concomitant]
  13. ZYPREXA [Concomitant]
  14. CALAN [Concomitant]
  15. ZOCOR [Concomitant]
  16. PROTONIX [Concomitant]
  17. LEXAPRO [Concomitant]
  18. PAXIL [Concomitant]
  19. SOMA [Concomitant]
  20. CELEBREX [Concomitant]
  21. DARVOCET [Concomitant]
  22. HYDROCODONE [Concomitant]
  23. DEMEROL [Concomitant]
  24. CELEXA [Concomitant]

REACTIONS (13)
  - ABDOMINAL PAIN UPPER [None]
  - CARDIOMEGALY [None]
  - CHOLELITHIASIS [None]
  - GASTROENTERITIS [None]
  - HEPATOMEGALY [None]
  - HYPERCHOLESTEROLAEMIA [None]
  - HYPERLIPIDAEMIA [None]
  - HYPOKALAEMIA [None]
  - LIVER FUNCTION TEST ABNORMAL [None]
  - MIGRAINE [None]
  - PALPITATIONS [None]
  - PANCREATITIS ACUTE [None]
  - TYPE 2 DIABETES MELLITUS [None]
